FAERS Safety Report 7061339-7 (Version None)
Quarter: 2010Q4

REPORT INFORMATION
  Report Type: 
  Country: None (occurrence: None)
  Receive Date: 20101026
  Receipt Date: 20101019
  Transmission Date: 20110411
  Serious: Yes (Death, Hospitalization)
  Sender: FDA-Public Use
  Company Number: ES-JNJFOC-20101005645

PATIENT
  Age: 72 Year
  Sex: Female

DRUGS (2)
  1. LOPERAMIDE [Suspect]
     Indication: DIARRHOEA
     Route: 065
  2. OTHER THERAPEUTIC PRODUCT [Concomitant]

REACTIONS (2)
  - BLOOD ELECTROLYTES ABNORMAL [None]
  - MALABSORPTION [None]
